FAERS Safety Report 6359645-4 (Version None)
Quarter: 2009Q3

REPORT INFORMATION
  Report Type: 
  Country: None (occurrence: None)
  Receive Date: 20090917
  Receipt Date: 20090902
  Transmission Date: 20100115
  Serious: Yes (Other)
  Sender: FDA-Public Use
  Company Number: US-BAYER-200914164BCC

PATIENT
  Age: 70 Year
  Sex: Male
  Weight: 127 kg

DRUGS (17)
  1. GENUINE REGIMEN BAYER 325MG [Suspect]
     Indication: ISCHAEMIC HEART DISEASE PROPHYLAXIS
     Route: 048
  2. ASPIRIN [Suspect]
     Indication: DRUG USE FOR UNKNOWN INDICATION
     Route: 048
  3. GLIPIZIDE [Concomitant]
     Route: 065
  4. RAMIPRIL [Concomitant]
     Route: 065
  5. TOPROL-XL [Concomitant]
     Route: 065
  6. CVS 81MG ASPIRIN [Concomitant]
     Dosage: TOTAL DAILY DOSE: 324 MG  UNIT DOSE: 81 MG
     Route: 065
  7. UROXATRAL [Concomitant]
     Route: 065
  8. SYNTHROID [Concomitant]
     Route: 065
  9. CINNAMON TABS [Concomitant]
     Route: 065
  10. SAW PALMETTO [Concomitant]
     Route: 065
  11. VITAMIN D [Concomitant]
     Route: 065
  12. LIPITOR [Concomitant]
     Route: 065
  13. AMOXICILLIN [Concomitant]
     Route: 065
  14. ACTIFED [Concomitant]
     Route: 065
  15. ASCORBIC ACID [Concomitant]
     Route: 065
  16. QUERCETIN [Concomitant]
     Route: 065
  17. GLUCOSAMINE CHONDROITIN [Concomitant]
     Route: 065

REACTIONS (2)
  - DEAFNESS [None]
  - TINNITUS [None]
